FAERS Safety Report 10680163 (Version 2)
Quarter: 2015Q1

REPORT INFORMATION
  Report Type: Spontaneous
  Country: IT (occurrence: IT)
  Receive Date: 20141229
  Receipt Date: 20150203
  Transmission Date: 20150720
  Serious: Yes (Hospitalization)
  Sender: FDA-Public Use
  Company Number: PHHY2014IT166919

PATIENT
  Sex: Female

DRUGS (1)
  1. DILTIAZEM [Suspect]
     Active Substance: DILTIAZEM
     Indication: PRODUCT USED FOR UNKNOWN INDICATION
     Dosage: 3 DF, ONCE/SINGLE
     Route: 065
     Dates: start: 20141026, end: 20141026

REACTIONS (4)
  - Vomiting [Recovering/Resolving]
  - Headache [Recovering/Resolving]
  - Drug abuse [Recovering/Resolving]
  - Intentional self-injury [Recovering/Resolving]

NARRATIVE: CASE EVENT DATE: 20141026
